FAERS Safety Report 4750200-6 (Version None)
Quarter: 2005Q3

REPORT INFORMATION
  Report Type: 
  Country: None (occurrence: None)
  Receive Date: 20050819
  Receipt Date: 20050805
  Transmission Date: 20060218
  Serious: Yes (Other)
  Sender: FDA-Public Use
  Company Number: 701316

PATIENT
  Age: 68 Year
  Sex: Female
  Weight: 63.5036 kg

DRUGS (3)
  1. AMEVIVE [Suspect]
     Indication: PSORIASIS
     Dosage: 7.5 MG; QW; IV;
     Route: 042
     Dates: start: 20030501, end: 20030101
  2. . [Concomitant]
  3. . [Suspect]

REACTIONS (1)
  - SKIN CANCER [None]
